FAERS Safety Report 8109214-0 (Version None)
Quarter: 2012Q1

REPORT INFORMATION
  Report Type: 
  Country: None (occurrence: None)
  Receive Date: 20120202
  Receipt Date: 20120119
  Transmission Date: 20120608
  Serious: Yes (Other)
  Sender: FDA-Public Use
  Company Number: CA-JNJFOC-20120200337

PATIENT
  Sex: Male

DRUGS (3)
  1. PREDNISONE TAB [Concomitant]
  2. PENTASA [Concomitant]
  3. REMICADE [Suspect]
     Indication: CROHN'S DISEASE
     Route: 042
     Dates: start: 20100111

REACTIONS (5)
  - RASH [None]
  - APHTHOUS STOMATITIS [None]
  - VISUAL IMPAIRMENT [None]
  - DYSPNOEA [None]
  - SINUS DISORDER [None]
